FAERS Safety Report 20185708 (Version 1)
Quarter: 2021Q4

REPORT INFORMATION
  Report Type: Report from Study
  Country: US (occurrence: US)
  Receive Date: 20211215
  Receipt Date: 20211215
  Transmission Date: 20220303
  Serious: Yes (Other)
  Sender: FDA-Public Use
  Company Number: US-ABBVIE-21K-163-4198014-00

PATIENT
  Age: 50 Year
  Sex: Female

DRUGS (1)
  1. HUMIRA [Suspect]
     Active Substance: ADALIMUMAB
     Indication: Ankylosing spondylitis
     Route: 058

REACTIONS (6)
  - Limb traumatic amputation [Unknown]
  - Inflammation [Recovered/Resolved with Sequelae]
  - Fibromyalgia [Unknown]
  - Road traffic accident [Recovered/Resolved]
  - Pain [Recovered/Resolved with Sequelae]
  - Therapeutic response shortened [Unknown]

NARRATIVE: CASE EVENT DATE: 20140911
